FAERS Safety Report 6488372-8 (Version None)
Quarter: 2009Q4

REPORT INFORMATION
  Report Type: 
  Country: None (occurrence: None)
  Receive Date: 20091123
  Receipt Date: 20090821
  Transmission Date: 20100525
  Serious: No
  Sender: FDA-Public Use
  Company Number: 8050728

PATIENT
  Age: 66 Year
  Sex: Female
  Weight: 91.1 kg

DRUGS (4)
  1. CIMZIA [Suspect]
     Indication: CROHN'S DISEASE
     Dosage: 400 MG 1/W SC
     Route: 058
     Dates: start: 20090820
  2. POTASSIUM [Concomitant]
  3. MAGNESIUM [Concomitant]
  4. ARICEPT [Concomitant]

REACTIONS (5)
  - DRUG ADMINISTRATION ERROR [None]
  - ENURESIS [None]
  - GAIT DISTURBANCE [None]
  - MUSCLE SPASMS [None]
  - MUSCULAR WEAKNESS [None]
